FAERS Safety Report 22258275 (Version 1)
Quarter: 2023Q2

REPORT INFORMATION
  Report Type: Spontaneous
  Country: GB (occurrence: GB)
  Receive Date: 20230427
  Receipt Date: 20230427
  Transmission Date: 20230721
  Serious: Yes (Hospitalization)
  Sender: FDA-Public Use
  Company Number: GB-MHRA-MED-202304151530544990-RBQFN

PATIENT
  Sex: Female

DRUGS (2)
  1. FLECAINIDE [Suspect]
     Active Substance: FLECAINIDE
     Indication: Atrial fibrillation
     Dosage: 150MG BD
     Route: 065
     Dates: start: 20210406, end: 20230410
  2. DIGOXIN [Concomitant]
     Active Substance: DIGOXIN
     Indication: Adverse drug reaction
     Dosage: UNK
     Route: 065
     Dates: end: 20230410

REACTIONS (1)
  - Atrial flutter [Recovered/Resolved]
